FAERS Safety Report 8939926 (Version 5)
Quarter: 2013Q4

REPORT INFORMATION
  Report Type: Spontaneous
  Country: US (occurrence: US)
  Receive Date: 20121130
  Receipt Date: 20131220
  Transmission Date: 20140711
  Serious: Yes (Hospitalization, Other)
  Sender: FDA-Public Use
  Company Number: US-009507513-1211USA012830

PATIENT
  Sex: Female
  Weight: 95.24 kg

DRUGS (7)
  1. FOSAMAX [Suspect]
     Indication: OSTEOPENIA
     Dosage: 70 MG, QW
     Route: 048
     Dates: start: 2003, end: 200601
  2. FOSAMAX PLUS D [Suspect]
     Indication: OSTEOPENIA
     Dosage: 70 MG/2800, QW
     Route: 048
     Dates: start: 200601, end: 200904
  3. ALENDRONATE SODIUM [Suspect]
     Indication: OSTEOPENIA
     Dosage: 70 MG, QW
     Route: 048
     Dates: start: 200904, end: 201011
  4. VITAMIN D (UNSPECIFIED) [Concomitant]
     Dosage: 5000 MG, DAILY
     Dates: start: 1999
  5. CALTRATE + D [Concomitant]
     Dosage: 200-600 MG BID
     Dates: start: 1999
  6. CENTRUM SILVER [Concomitant]
     Dosage: ONE DAILY
     Dates: start: 1999
  7. OCUVITE PRESERVISION [Concomitant]
     Dosage: ONE DAILY
     Dates: start: 1999

REACTIONS (46)
  - Femur fracture [Recovered/Resolved]
  - Intramedullary rod insertion [Unknown]
  - Internal fixation of fracture [Unknown]
  - Internal fixation of fracture [Unknown]
  - Cholecystectomy [Unknown]
  - Internal fixation of fracture [Unknown]
  - Device deployment issue [Unknown]
  - Impaired healing [Unknown]
  - Procedural haemorrhage [Unknown]
  - Device related infection [Unknown]
  - Debridement [Unknown]
  - Device failure [Unknown]
  - Procedural haemorrhage [Unknown]
  - Antibiotic therapy [Unknown]
  - Device related infection [Unknown]
  - Removal of internal fixation [Unknown]
  - Fracture nonunion [Recovered/Resolved]
  - Hip arthroplasty [Recovering/Resolving]
  - Procedural haemorrhage [Unknown]
  - Hypotension [Recovered/Resolved]
  - Abdominal hernia [Unknown]
  - Coronary arterial stent insertion [Unknown]
  - Arteriosclerosis coronary artery [Unknown]
  - Hypertension [Unknown]
  - Hyperlipidaemia [Unknown]
  - Hysterectomy [Unknown]
  - Hypertonic bladder [Unknown]
  - Osteoarthritis [Unknown]
  - Osteoporosis [Unknown]
  - Appendicectomy [Unknown]
  - Memory impairment [Unknown]
  - Traumatic arthritis [Unknown]
  - Wound dehiscence [Unknown]
  - Gait disturbance [Unknown]
  - Arthritis [Unknown]
  - Anaemia [Unknown]
  - Abdominal hernia repair [Unknown]
  - Abdominal hernia [Unknown]
  - Urinary incontinence [Unknown]
  - Osteomyelitis [Recovering/Resolving]
  - Fracture nonunion [Recovered/Resolved]
  - Intervertebral disc space narrowing [Unknown]
  - Facet joint syndrome [Unknown]
  - Device deployment issue [Unknown]
  - Drug ineffective [Unknown]
  - Gastrooesophageal reflux disease [Unknown]
